FAERS Safety Report 5043145-8 (Version None)
Quarter: 2006Q2

REPORT INFORMATION
  Report Type: 
  Country: None (occurrence: None)
  Receive Date: 20060628
  Receipt Date: 20060607
  Transmission Date: 20061013
  Serious: Yes (Other)
  Sender: FDA-Public Use
  Company Number: FR200606001621

PATIENT
  Age: 50 Year
  Sex: Female

DRUGS (2)
  1. FORTEO [Suspect]
     Indication: OSTEOPOROSIS
     Dosage: 20 UG DAILY (1/D) SUBCUTANEOUS
     Route: 058
     Dates: start: 20051220
  2. FORTEO PEN (FORTEO PEN) [Concomitant]

REACTIONS (3)
  - AFFECTIVE DISORDER [None]
  - BLOOD THYROID STIMULATING HORMONE INCREASED [None]
  - SUICIDAL IDEATION [None]
